FAERS Safety Report 10021037 (Version 1)
Quarter: 2014Q1

REPORT INFORMATION
  Report Type: Spontaneous
  Country: DE (occurrence: DE)
  Receive Date: 20140319
  Receipt Date: 20140319
  Transmission Date: 20141002
  Serious: Yes (Other)
  Sender: FDA-Public Use
  Company Number: DE-ASTELLAS-2014US002633

PATIENT
  Sex: Female

DRUGS (2)
  1. RAPISCAN [Suspect]
     Indication: SCAN MYOCARDIAL PERFUSION
     Dosage: UNK
     Route: 042
     Dates: start: 20140307, end: 20140307
  2. MYOVIEW                            /02203201/ [Concomitant]
     Indication: SCAN MYOCARDIAL PERFUSION
     Dosage: UNK
     Route: 065
     Dates: start: 20140307, end: 20140307

REACTIONS (4)
  - Swelling face [Unknown]
  - Abdominal distension [Unknown]
  - Erythema [Unknown]
  - Erythema [Unknown]
